FAERS Safety Report 9435144 (Version 1)
Quarter: 2013Q3

REPORT INFORMATION
  Report Type: Spontaneous
  Country: IT (occurrence: IT)
  Receive Date: 20130801
  Receipt Date: 20130801
  Transmission Date: 20140515
  Serious: Yes (Other)
  Sender: FDA-Public Use
  Company Number: IT-TEVA-421664ISR

PATIENT
  Age: 56 Year
  Sex: Male

DRUGS (2)
  1. CEFAZOLINA TEVA 1 G [Suspect]
     Indication: ANTIBIOTIC PROPHYLAXIS
     Dosage: 2 GRAM DAILY; POWDER AND SOLVENT FOT INJECTABLE SOLUTION
     Route: 042
     Dates: start: 20130718, end: 20130718
  2. ARTROSILENE [Suspect]
     Indication: POSTOPERATIVE ANALGESIA
     Dosage: 100 MILLIGRAM DAILY; POWDER AND SOLVENT FOT INJECTABLE SOLUTION
     Route: 042
     Dates: start: 20130718, end: 20130718

REACTIONS (4)
  - Hypersensitivity [Recovering/Resolving]
  - Rash [Recovering/Resolving]
  - Urticaria [Recovering/Resolving]
  - Eyelid oedema [Recovering/Resolving]
